FAERS Safety Report 9540859 (Version 1)
Quarter: 2013Q3

REPORT INFORMATION
  Report Type: Report from Study
  Country: BR (occurrence: BR)
  Receive Date: 20130920
  Receipt Date: 20130920
  Transmission Date: 20140515
  Serious: Yes (Death, Hospitalization, Other)
  Sender: FDA-Public Use
  Company Number: PHHY2013BR104832

PATIENT
  Sex: Female
  Weight: 55 kg

DRUGS (1)
  1. EXELON PATCH [Suspect]
     Indication: DEMENTIA ALZHEIMER^S TYPE
     Dosage: 1 DF, DAILY/EVERY 24 HOURS
     Route: 062
     Dates: start: 201212

REACTIONS (2)
  - Leukaemia [Fatal]
  - Anaemia [Fatal]
